FAERS Safety Report 7810161-X (Version None)
Quarter: 2011Q4

REPORT INFORMATION
  Report Type: 
  Country: None (occurrence: None)
  Receive Date: 20111012
  Receipt Date: 20111006
  Transmission Date: 20120403
  Serious: Yes (Other)
  Sender: FDA-Public Use
  Company Number: HU-PFIZER INC-2011241106

PATIENT
  Age: 58 Year
  Sex: Female
  Weight: 72 kg

DRUGS (5)
  1. METFOGAMMA [Concomitant]
     Dosage: UNK
     Dates: start: 20000101
  2. DIAPREL [Concomitant]
     Dosage: UNK
  3. ASPIRIN [Concomitant]
     Dosage: UNK
     Dates: start: 20110101
  4. PERINDOPRIL TERT-BUTYLAMINE [Concomitant]
     Dosage: UNK
  5. ATORVASTATIN CALCIUM [Suspect]
     Indication: BLOOD CHOLESTEROL INCREASED
     Dosage: 1/2 TABLET OF 40MG IN THE EVENING; ONCE DAILY
     Dates: start: 20110701, end: 20110801

REACTIONS (3)
  - HEADACHE [None]
  - DIZZINESS [None]
  - STUPOR [None]
